FAERS Safety Report 21922928 (Version 6)
Quarter: 2023Q2

REPORT INFORMATION
  Report Type: Report from Study
  Country: MX (occurrence: MX)
  Receive Date: 20230128
  Receipt Date: 20230517
  Transmission Date: 20230721
  Serious: Yes (Life-Threatening, Hospitalization, Disabling, Other)
  Sender: FDA-Public Use
  Company Number: MX-002147023-NVSC2023MX019094

PATIENT
  Age: 45 Year
  Sex: Female

DRUGS (1)
  1. GILENYA [Suspect]
     Active Substance: FINGOLIMOD HYDROCHLORIDE
     Indication: Multiple sclerosis
     Dosage: 0.5 MG, QD, BY MOUTH
     Route: 048
     Dates: start: 20220729

REACTIONS (24)
  - Feeling abnormal [Unknown]
  - Multiple sclerosis relapse [Recovering/Resolving]
  - Pain in extremity [Unknown]
  - Balance disorder [Not Recovered/Not Resolved]
  - Memory impairment [Unknown]
  - Gait disturbance [Unknown]
  - Mobility decreased [Unknown]
  - Speech disorder [Unknown]
  - Swelling [Unknown]
  - Mood altered [Unknown]
  - Malaise [Unknown]
  - Nausea [Unknown]
  - Paralysis [Unknown]
  - Fear [Unknown]
  - Confusional state [Not Recovered/Not Resolved]
  - Apathy [Not Recovered/Not Resolved]
  - Fall [Not Recovered/Not Resolved]
  - Urinary incontinence [Not Recovered/Not Resolved]
  - Joint injury [Unknown]
  - Pain [Unknown]
  - Anal incontinence [Unknown]
  - Hypersomnia [Unknown]
  - Asthenia [Unknown]
  - Fatigue [Not Recovered/Not Resolved]

NARRATIVE: CASE EVENT DATE: 20230101
